FAERS Safety Report 10939800 (Version 1)
Quarter: 2015Q1

REPORT INFORMATION
  Report Type: Spontaneous
  Country: US (occurrence: None)
  Receive Date: 20150212
  Receipt Date: 20150212
  Transmission Date: 20150721
  Serious: No
  Sender: FDA-Public Use
  Company Number: TPA2010A05925

PATIENT
  Age: 8 Decade
  Sex: Female

DRUGS (2)
  1. CHEMOTHERAPY (ALL OTHER THERAPEUTIC PRODUCTS) [Concomitant]
  2. ULORIC [Suspect]
     Active Substance: FEBUXOSTAT

REACTIONS (2)
  - Hypersensitivity [None]
  - Lip swelling [None]
